FAERS Safety Report 8937099 (Version 1)
Quarter: 2012Q4

REPORT INFORMATION
  Report Type: Spontaneous
  Country: US (occurrence: None)
  Receive Date: 20121128
  Receipt Date: 20121128
  Transmission Date: 20130627
  Serious: Yes (Disabling, Other)
  Sender: FDA-Public Use
  Company Number: None

PATIENT
  Age: 39 Year
  Sex: Female
  Weight: 61.24 kg

DRUGS (5)
  1. ABILIFY [Suspect]
     Indication: ANXIETY
     Dosage: one pill once daily po
     Route: 048
  2. ABILIFY [Suspect]
     Indication: DEPRESSION
     Dosage: one pill once daily po
     Route: 048
  3. ABILIFY [Suspect]
     Indication: MOOD DISORDER NOS
     Dosage: one pill once daily po
     Route: 048
  4. TOPIRAMATE [Concomitant]
  5. FLUXETINE [Concomitant]

REACTIONS (4)
  - Insomnia [None]
  - Feeling abnormal [None]
  - Dizziness [None]
  - Vision blurred [None]
